FAERS Safety Report 22283036 (Version 1)
Quarter: 2023Q2

REPORT INFORMATION
  Report Type: Spontaneous
  Country: FR (occurrence: FR)
  Receive Date: 20230504
  Receipt Date: 20230504
  Transmission Date: 20230721
  Serious: Yes (Other)
  Sender: FDA-Public Use
  Company Number: None

PATIENT
  Age: 59 Year
  Sex: Female

DRUGS (10)
  1. CAPECITABINE [Suspect]
     Active Substance: CAPECITABINE
     Indication: Breast cancer
     Route: 065
  2. ANASTROZOLE [Suspect]
     Active Substance: ANASTROZOLE
     Indication: Breast cancer
     Dosage: UNK
     Route: 065
  3. PALBOCICLIB [Suspect]
     Active Substance: PALBOCICLIB
     Indication: Breast cancer
     Dosage: UNK
     Route: 065
  4. LETROZOLE [Suspect]
     Active Substance: LETROZOLE
     Indication: Breast cancer
     Dosage: 5TH LINE THERAPY FOR 7 MONTHS
     Route: 065
  5. LETROZOLE [Suspect]
     Active Substance: LETROZOLE
     Dosage: UNK, FOR 6 MONTHS
  6. NAVELBINE [Suspect]
     Active Substance: VINORELBINE TARTRATE
     Indication: Breast cancer
     Dosage: UNK
     Route: 065
  7. FULVESTRANT [Suspect]
     Active Substance: FULVESTRANT
     Indication: Breast cancer
     Dosage: UNK
     Route: 065
  8. PACLITAXEL [Suspect]
     Active Substance: PACLITAXEL
     Indication: Breast cancer
     Dosage: UNKNOWN
     Route: 065
  9. BEVACIZUMAB [Suspect]
     Active Substance: BEVACIZUMAB
     Indication: Breast cancer
     Dosage: UNK
     Route: 065
  10. ERIBULIN [Suspect]
     Active Substance: ERIBULIN
     Indication: Breast cancer
     Dosage: UNK
     Route: 065

REACTIONS (2)
  - Disease progression [Not Recovered/Not Resolved]
  - Breast cancer [Not Recovered/Not Resolved]
